FAERS Safety Report 6152772-6 (Version None)
Quarter: 2009Q2

REPORT INFORMATION
  Report Type: 
  Country: None (occurrence: None)
  Receive Date: 20090409
  Receipt Date: 20090327
  Transmission Date: 20091009
  Serious: Yes (Other)
  Sender: FDA-Public Use
  Company Number: 1-17713281

PATIENT
  Sex: Female
  Weight: 260 kg

DRUGS (7)
  1. XENADERM [Suspect]
     Indication: ACNE
     Dosage: SMALL AMOUNT ONCE DAILY, INTRANASAL
     Route: 045
     Dates: start: 20090220, end: 20090225
  2. LEVOTHYROXINE SODIUM [Concomitant]
  3. OXYCONTIN [Concomitant]
  4. CORTISONE [Concomitant]
  5. VITAMIN TAB [Concomitant]
  6. ZOLPIDEM TARTRATE [Concomitant]
  7. PREMARIN [Concomitant]

REACTIONS (8)
  - BLINDNESS TRANSIENT [None]
  - BLOOD PRESSURE INCREASED [None]
  - HEADACHE [None]
  - NAUSEA [None]
  - PHOTOPSIA [None]
  - SELF-MEDICATION [None]
  - THYROID FUNCTION TEST ABNORMAL [None]
  - VOMITING [None]
